FAERS Safety Report 24893416 (Version 2)
Quarter: 2025Q1

REPORT INFORMATION
  Report Type: Spontaneous
  Country: US (occurrence: US)
  Receive Date: 20250128
  Receipt Date: 20250301
  Transmission Date: 20250408
  Serious: Yes (Death, Other)
  Sender: AUROBINDO
  Company Number: US-AUROBINDO-AUR-APL-2025-003865

PATIENT
  Age: 23 Year
  Sex: Male

DRUGS (1)
  1. KETAMINE HYDROCHLORIDE [Suspect]
     Active Substance: KETAMINE HYDROCHLORIDE
     Indication: Sedative therapy
     Route: 065

REACTIONS (3)
  - Pulseless electrical activity [Fatal]
  - Cardiac arrest [Fatal]
  - Respiratory distress [Unknown]
